FAERS Safety Report 9389362 (Version 1)
Quarter: 2013Q3

REPORT INFORMATION
  Report Type: Spontaneous
  Country: US (occurrence: US)
  Receive Date: 20130708
  Receipt Date: 20130708
  Transmission Date: 20140515
  Serious: No
  Sender: FDA-Public Use
  Company Number: US-AMGEN-USASP2013042459

PATIENT
  Age: 57 Year
  Sex: Male

DRUGS (1)
  1. ENBREL [Suspect]
     Indication: PSORIASIS
     Dosage: 50 MG, QWK
     Route: 065
     Dates: start: 20030204

REACTIONS (6)
  - Injection site mass [Recovered/Resolved]
  - Injection site bruising [Recovered/Resolved]
  - Increased tendency to bruise [Recovered/Resolved]
  - Limb discomfort [Not Recovered/Not Resolved]
  - Muscle strain [Not Recovered/Not Resolved]
  - Memory impairment [Not Recovered/Not Resolved]
